FAERS Safety Report 7607263-X (Version None)
Quarter: 2011Q3

REPORT INFORMATION
  Report Type: 
  Country: None (occurrence: None)
  Receive Date: 20110712
  Receipt Date: 20110712
  Transmission Date: 20111222
  Serious: No
  Sender: FDA-Public Use
  Company Number: None

PATIENT
  Age: 37 Year
  Sex: Female
  Weight: 101.6057 kg

DRUGS (3)
  1. CYMBALTA [Suspect]
     Indication: DEPRESSION
     Dosage: 1 CAPSULE ONCE A DAY PO
     Route: 048
     Dates: start: 20110525, end: 20110710
  2. CYMBALTA [Suspect]
     Indication: ANXIETY
     Dosage: 1 CAPSULE ONCE A DAY PO
     Route: 048
     Dates: start: 20110525, end: 20110710
  3. CYMBALTA [Suspect]
     Indication: MUSCULOSKELETAL PAIN
     Dosage: 1 CAPSULE ONCE A DAY PO
     Route: 048
     Dates: start: 20110525, end: 20110710

REACTIONS (4)
  - TRISMUS [None]
  - JAW DISORDER [None]
  - MUSCLE TIGHTNESS [None]
  - FEELING ABNORMAL [None]
